FAERS Safety Report 18430365 (Version 1)
Quarter: 2020Q4

REPORT INFORMATION
  Report Type: Other
  Country: CZ (occurrence: CZ)
  Receive Date: 20201026
  Receipt Date: 20201026
  Transmission Date: 20210114
  Serious: Yes (Other)
  Sender: FDA-Public Use
  Company Number: CZ-ROCHE-2702226

PATIENT
  Sex: Male

DRUGS (1)
  1. CAPECITABINE. [Suspect]
     Active Substance: CAPECITABINE
     Indication: APPENDIX CANCER
     Route: 048
     Dates: end: 201303

REACTIONS (2)
  - Hepatotoxicity [Unknown]
  - Condition aggravated [Unknown]

NARRATIVE: CASE EVENT DATE: 2013
